FAERS Safety Report 26073065 (Version 3)
Quarter: 2025Q4

REPORT INFORMATION
  Report Type: Spontaneous
  Country: US (occurrence: US)
  Receive Date: 20251121
  Receipt Date: 20251224
  Transmission Date: 20260117
  Serious: Yes (Other)
  Sender: ABBVIE
  Company Number: US-ABBVIE-6553820

PATIENT
  Age: 70 Year
  Sex: Male
  Weight: 102.05 kg

DRUGS (6)
  1. COMBIGAN [Suspect]
     Active Substance: BRIMONIDINE TARTRATE\TIMOLOL MALEATE
     Indication: Glaucoma
     Dosage: 0.2%/0.5?BRIMONIDINE 2MG/ML;TIMOLOL 6.8MG/ML?0.10 5% EACH EYE TWICE A DAY
     Route: 047
     Dates: start: 2005
  2. ROCKLATAN [Concomitant]
     Active Substance: LATANOPROST\NETARSUDIL MESYLATE
     Indication: Glaucoma
     Dosage: EACH EYE ONCE A DAY
  3. covid vaccine [Concomitant]
     Indication: Product used for unknown indication
     Dates: start: 202510
  4. METFORMIN [Concomitant]
     Active Substance: METFORMIN HYDROCHLORIDE
     Indication: Product used for unknown indication
     Dosage: 750 MG ONCE A DAY
  5. TYLENOL [Concomitant]
     Active Substance: ACETAMINOPHEN
     Indication: Product used for unknown indication
     Dosage: AS NEEDED
  6. INFLUENZA VIRUS VACCINE [Concomitant]
     Active Substance: INFLUENZA VIRUS VACCINE
     Indication: Product used for unknown indication
     Dosage: FLU VACCINE

REACTIONS (5)
  - Retinal tear [Recovered/Resolved]
  - Vision blurred [Recovered/Resolved]
  - Visual impairment [Recovered/Resolved]
  - Visual field defect [Recovered/Resolved]
  - Macular hole [Recovered/Resolved]

NARRATIVE: CASE EVENT DATE: 20180101
